FAERS Safety Report 8762311 (Version 1)
Quarter: 2012Q4

REPORT INFORMATION
  Report Type: 
  Country: CN (occurrence: CN)
  Receive Date: 20120830
  Receipt Date: 20120830
  Transmission Date: 20130627
  Serious: Yes (Hospitalization, Other)
  Sender: FDA-Public Use
  Company Number: CN-ROCHE-1107311

PATIENT
  Age: 3 Year
  Sex: Female
  Weight: 13 kg

DRUGS (6)
  1. ROCEPHIN [Suspect]
     Indication: BACTERIAL INFECTION
     Route: 041
     Dates: start: 20081025, end: 20081028
  2. ROCEPHIN [Suspect]
     Indication: GASTROENTERITIS SHIGELLA
     Route: 041
     Dates: start: 20081102, end: 20081109
  3. SODIUM CHLORIDE [Concomitant]
     Indication: BACTERIAL INFECTION
     Route: 041
     Dates: start: 20081025
  4. SODIUM CHLORIDE [Concomitant]
     Indication: GASTROENTERITIS SHIGELLA
     Route: 041
     Dates: start: 20081102
  5. GANCICLOVIR [Concomitant]
     Route: 041
     Dates: start: 20081101, end: 20081108
  6. COLISTIN SULFATE [Concomitant]
     Indication: GASTROENTERITIS SHIGELLA
     Route: 048
     Dates: start: 20081102, end: 20081114

REACTIONS (4)
  - Rash [Recovering/Resolving]
  - Epstein-Barr virus infection [Unknown]
  - Cytomegalovirus infection [Unknown]
  - Gastroenteritis shigella [Unknown]
